FAERS Safety Report 17307298 (Version 1)
Quarter: 2020Q1

REPORT INFORMATION
  Report Type: Spontaneous
  Country: US (occurrence: US)
  Receive Date: 20200122
  Receipt Date: 20200122
  Transmission Date: 20200409
  Serious: Yes (Hospitalization)
  Sender: FDA-Public Use
  Company Number: None

PATIENT
  Age: 28 Year
  Sex: Female

DRUGS (1)
  1. EMGALITY [Suspect]
     Active Substance: GALCANEZUMAB-GNLM
     Dosage: ?          OTHER FREQUENCY:EVERY 28 DAYS;?
     Route: 058

REACTIONS (2)
  - Disease recurrence [None]
  - Insurance issue [None]

NARRATIVE: CASE EVENT DATE: 20200121
